FAERS Safety Report 10649758 (Version 3)
Quarter: 2015Q2

REPORT INFORMATION
  Report Type: Spontaneous
  Country: US (occurrence: US)
  Receive Date: 20141212
  Receipt Date: 20150529
  Transmission Date: 20150821
  Serious: Yes (Hospitalization)
  Sender: FDA-Public Use
  Company Number: US-BAYER-2014-183080

PATIENT
  Age: 28 Year
  Sex: Female
  Weight: 80.73 kg

DRUGS (1)
  1. MIRENA [Suspect]
     Active Substance: LEVONORGESTREL
     Indication: CONTRACEPTION
     Dosage: 20 MCG/24HR, CONT
     Route: 015
     Dates: start: 20080904, end: 20100320

REACTIONS (7)
  - Depression [None]
  - Uterine perforation [Not Recovered/Not Resolved]
  - Stress [None]
  - Injury [Not Recovered/Not Resolved]
  - Fear [None]
  - Anxiety [None]
  - Abdominal pain [Not Recovered/Not Resolved]

NARRATIVE: CASE EVENT DATE: 201002
